FAERS Safety Report 8113336-8 (Version None)
Quarter: 2012Q1

REPORT INFORMATION
  Report Type: 
  Country: None (occurrence: None)
  Receive Date: 20120203
  Receipt Date: 20120130
  Transmission Date: 20120608
  Serious: Yes (Hospitalization)
  Sender: FDA-Public Use
  Company Number: PHHO2012US001895

PATIENT
  Sex: Male

DRUGS (8)
  1. SPIRONOLACTONE [Suspect]
  2. HUMALOG [Suspect]
     Indication: TYPE 2 DIABETES MELLITUS
     Dosage: 7 IU, UNK
  3. EZETIMIBE [Concomitant]
  4. LISINOPRIL [Suspect]
  5. SEROQUEL [Concomitant]
  6. METOPROLOL TARTRATE [Suspect]
  7. LANTUS [Suspect]
     Indication: TYPE 2 DIABETES MELLITUS
     Dosage: 55 IU, UNK
  8. ASPIRIN [Concomitant]

REACTIONS (2)
  - ORTHOSTATIC HYPOTENSION [None]
  - ACUTE PRERENAL FAILURE [None]
